FAERS Safety Report 9557846 (Version 1)
Quarter: 2013Q3

REPORT INFORMATION
  Report Type: Spontaneous
  Country: US (occurrence: US)
  Receive Date: 20130926
  Receipt Date: 20130926
  Transmission Date: 20140515
  Serious: No
  Sender: FDA-Public Use
  Company Number: US-TEVA-434415USA

PATIENT
  Sex: Male

DRUGS (5)
  1. NUVIGIL [Suspect]
     Indication: DEPRESSED LEVEL OF CONSCIOUSNESS
     Dosage: 250 MILLIGRAM DAILY;
     Route: 048
     Dates: start: 2008
  2. NUVIGIL [Suspect]
     Indication: DISTURBANCE IN ATTENTION
     Dosage: 300 MILLIGRAM DAILY;
     Route: 048
     Dates: start: 2008
  3. PROVIGIL [Suspect]
     Dosage: 200 MILLIGRAM DAILY;
     Route: 048
     Dates: start: 2008
  4. ANTIDEPRESSANT [Concomitant]
     Indication: DEPRESSION
  5. PAIN MEDICATION [Concomitant]
     Indication: PAIN

REACTIONS (6)
  - Vitiligo [Not Recovered/Not Resolved]
  - Skin depigmentation [Not Recovered/Not Resolved]
  - Wrong technique in drug usage process [Unknown]
  - Therapeutic response unexpected [Unknown]
  - Extra dose administered [Unknown]
  - Off label use [Unknown]
